FAERS Safety Report 14683861 (Version 2)
Quarter: 2018Q2

REPORT INFORMATION
  Report Type: Other
  Country: DE (occurrence: DE)
  Receive Date: 20180327
  Receipt Date: 20180403
  Transmission Date: 20180711
  Serious: Yes (Hospitalization, Other)
  Sender: FDA-Public Use
  Company Number: DE-DEXPHARM-20180210

PATIENT
  Age: 15 Year
  Sex: Male
  Weight: 106 kg

DRUGS (15)
  1. ROACTEMRA [Suspect]
     Active Substance: TOCILIZUMAB
     Indication: STILL^S DISEASE
     Dosage: 20 MG, 1/WEEK
     Route: 042
     Dates: start: 20141217
  2. PERAMPANEL [Concomitant]
     Active Substance: PERAMPANEL
     Indication: STILL^S DISEASE
     Dosage: 20 MG, 1/WEEK
     Route: 048
     Dates: start: 20160303
  3. PANTOPRAZOLE [Suspect]
     Active Substance: PANTOPRAZOLE
     Indication: STILL^S DISEASE
     Dosage: 20 MG, 1/WEEK
     Route: 065
     Dates: start: 20141204
  4. ETORICOXIB [Concomitant]
     Active Substance: ETORICOXIB
     Indication: STILL^S DISEASE
     Dosage: 20 MG, 1/WEEK
     Route: 048
     Dates: start: 20160403
  5. FOLIC ACID. [Concomitant]
     Active Substance: FOLIC ACID
     Dosage: 20 MG, 1/WEEK
     Route: 048
     Dates: start: 20141204
  6. TOPIRAMATE. [Concomitant]
     Active Substance: TOPIRAMATE
     Indication: EPILEPSY
     Dosage: 20 MG, 1/WEEK
     Route: 048
  7. PREDNISONE. [Suspect]
     Active Substance: PREDNISONE
     Indication: STILL^S DISEASE
     Dosage: 20 MG, 1/WEEK
     Route: 065
     Dates: start: 20150428
  8. OMEPRAZOLE. [Concomitant]
     Active Substance: OMEPRAZOLE
     Indication: STILL^S DISEASE
     Dosage: 20 MG, 1/WEEK
     Route: 048
     Dates: start: 20141217
  9. ARCOXIA [Concomitant]
     Active Substance: ETORICOXIB
     Dosage: 20 MG, 1/WEEK
     Route: 065
  10. OXCARBAZEPINE. [Concomitant]
     Active Substance: OXCARBAZEPINE
     Indication: EPILEPSY
     Dosage: 20 MG, 1/WEEK
     Route: 048
     Dates: start: 20160908
  11. ROACTEMRA [Suspect]
     Active Substance: TOCILIZUMAB
     Dosage: 20 MG, 1/WEEK
     Route: 042
     Dates: start: 20150428
  12. FOLSAURE [Concomitant]
     Active Substance: FOLIC ACID
     Dosage: 20 MG, 1/WEEK
     Route: 048
  13. FOLSAURE [Concomitant]
     Active Substance: FOLIC ACID
     Indication: STILL^S DISEASE
     Dosage: 20 MG, 1/WEEK
     Route: 048
     Dates: start: 20141204
  14. DICLOFENAC [Suspect]
     Active Substance: DICLOFENAC
     Indication: STILL^S DISEASE
     Dosage: 20 MG, 1/WEEK
     Route: 048
     Dates: start: 20141217, end: 20150113
  15. METHOTREXATE SODIUM. [Suspect]
     Active Substance: METHOTREXATE SODIUM
     Indication: STILL^S DISEASE
     Dosage: 20 MG, 1/WEEK
     Route: 048
     Dates: start: 20141204

REACTIONS (8)
  - Pneumonia aspiration [Recovered/Resolved]
  - Seizure [Recovered/Resolved]
  - Hand fracture [Unknown]
  - Sinusitis [Recovered/Resolved]
  - Otitis media [Recovered/Resolved]
  - Craniocerebral injury [Unknown]
  - Epilepsy [Recovered/Resolved]
  - Fall [Unknown]

NARRATIVE: CASE EVENT DATE: 20150430
